FAERS Safety Report 8988252 (Version 1)
Quarter: 2012Q4

REPORT INFORMATION
  Report Type: 
  Country: GR (occurrence: GR)
  Receive Date: 20121227
  Receipt Date: 20121227
  Transmission Date: 20130627
  Serious: Yes (Other)
  Sender: FDA-Public Use
  Company Number: GR-ABBOTT-12P-066-1026746-00

PATIENT

DRUGS (1)
  1. CYCLOSPORINE [Suspect]
     Indication: PSORIATIC ARTHROPATHY

REACTIONS (1)
  - Erectile dysfunction [Unknown]
